FAERS Safety Report 7086572-X (Version None)
Quarter: 2010Q4

REPORT INFORMATION
  Report Type: 
  Country: None (occurrence: None)
  Receive Date: 20101105
  Receipt Date: 20101026
  Transmission Date: 20110411
  Serious: Yes (Other)
  Sender: FDA-Public Use
  Company Number: PHHY2010JP56449

PATIENT
  Age: 76 Year
  Sex: Female
  Weight: 45 kg

DRUGS (15)
  1. AFINITOR [Suspect]
     Indication: METASTATIC RENAL CELL CARCINOMA
     Dosage: 10 MG DAILY
     Route: 048
     Dates: start: 20100608, end: 20100705
  2. INTERFERON ALFA [Concomitant]
     Indication: METASTATIC RENAL CELL CARCINOMA
     Dosage: 6000000 IU, UNK
     Route: 065
     Dates: start: 20061110, end: 20080717
  3. SORAFENIB TOSILATE [Concomitant]
     Indication: METASTATIC RENAL CELL CARCINOMA
     Dosage: 800 MG, UNK
     Route: 048
     Dates: start: 20080718, end: 20100510
  4. POLARAMINE [Concomitant]
     Dosage: 2 MG, UNK
     Route: 048
     Dates: start: 20080801
  5. SELBEX [Concomitant]
     Dosage: 100 MG, UNK
     Route: 048
     Dates: start: 20061101
  6. DECADRON [Concomitant]
     Dosage: 1 MG, UNK
     Route: 048
     Dates: start: 20080801
  7. DECADRON [Concomitant]
     Dosage: 0.5 MG, UNK
     Route: 048
  8. LOXONIN [Concomitant]
     Dosage: 60 MG, UNK
     Route: 048
     Dates: start: 20061101
  9. DEPAS [Concomitant]
     Dosage: 0.5 MG, UNK
     Route: 048
  10. CYANOCOBALAMIN [Concomitant]
     Dosage: 1000 UG, UNK
     Route: 048
  11. MEVALOTIN [Concomitant]
     Dosage: 10MG
     Route: 048
  12. JUVELA NICOTINATE [Concomitant]
     Dosage: 400MG
  13. ROCALTROL [Concomitant]
     Dosage: 0.5 UG, UNK
     Route: 048
  14. GASTER D [Concomitant]
     Dosage: 40MG
     Route: 048
  15. ADJUST-A [Concomitant]
     Dosage: 80MG
     Route: 048

REACTIONS (3)
  - MALIGNANT NEOPLASM PROGRESSION [None]
  - METASTATIC RENAL CELL CARCINOMA [None]
  - SKIN ULCER [None]
